FAERS Safety Report 11855346 (Version 3)
Quarter: 2016Q3

REPORT INFORMATION
  Report Type: Report from Study
  Country: AR (occurrence: AR)
  Receive Date: 20151221
  Receipt Date: 20160712
  Transmission Date: 20161109
  Serious: Yes (Hospitalization)
  Sender: FDA-Public Use
  Company Number: PHHY2015AR165892

PATIENT
  Age: 63 Year
  Sex: Male

DRUGS (2)
  1. DIOSMIN W/HESPERIDIN [Concomitant]
     Indication: CARDIOVASCULAR DISORDER
     Dosage: 500 UNK, UNK
     Route: 065
     Dates: start: 201512
  2. EXFORGE [Suspect]
     Active Substance: AMLODIPINE BESYLATE\VALSARTAN
     Indication: HYPERTENSION
     Dosage: 1 DF, (AMLODIPINE 5 MG, VALSARTAN 160 MG) (5 YEARS AGO)
     Route: 065
     Dates: end: 201512

REACTIONS (5)
  - Hip fracture [Recovered/Resolved]
  - Pancreatitis acute [Recovered/Resolved]
  - Overweight [Not Recovered/Not Resolved]
  - Peripheral swelling [Recovered/Resolved]
  - Chronic obstructive pulmonary disease [Unknown]

NARRATIVE: CASE EVENT DATE: 20130402
